FAERS Safety Report 12156239 (Version 3)
Quarter: 2016Q1

REPORT INFORMATION
  Report Type: Spontaneous
  Country: FR (occurrence: FR)
  Receive Date: 20160307
  Receipt Date: 20160314
  Transmission Date: 20160526
  Serious: Yes (Hospitalization, Disabling, Other)
  Sender: FDA-Public Use
  Company Number: FR-MYLANLABS-2016M1008960

PATIENT

DRUGS (7)
  1. KETOPROFEN MYLAN [Suspect]
     Active Substance: KETOPROFEN
     Dosage: 200 MG, QD
     Dates: start: 20151207
  2. KETOPROFEN MYLAN [Suspect]
     Active Substance: KETOPROFEN
     Indication: PROCEDURAL PAIN
     Dosage: UNK
     Dates: start: 2014
  3. TRAMADOL. [Concomitant]
     Active Substance: TRAMADOL
     Indication: PRODUCT USED FOR UNKNOWN INDICATION
     Dosage: 200 MG, QD
     Route: 048
     Dates: start: 20150920, end: 20151018
  4. LANSOPRAZOL [Concomitant]
     Active Substance: LANSOPRAZOLE
     Indication: PRODUCT USED FOR UNKNOWN INDICATION
     Dosage: 15 MG, QD
     Route: 048
     Dates: start: 20150920, end: 20151018
  5. KETOPROFEN MYLAN [Suspect]
     Active Substance: KETOPROFEN
     Dosage: 100 MG, BID
     Route: 048
     Dates: start: 20150920, end: 20151002
  6. KETOPROFEN MYLAN [Suspect]
     Active Substance: KETOPROFEN
     Dosage: UNK
     Dates: start: 201507
  7. DOLIPRANE [Concomitant]
     Active Substance: ACETAMINOPHEN
     Indication: PRODUCT USED FOR UNKNOWN INDICATION
     Dosage: 2 G, QD
     Route: 048
     Dates: start: 20150920, end: 20151018

REACTIONS (7)
  - Deafness unilateral [Recovering/Resolving]
  - Cold sweat [Unknown]
  - Vestibular neuronitis [Unknown]
  - Nausea [Unknown]
  - Tinnitus [Recovering/Resolving]
  - Dizziness [Recovering/Resolving]
  - Balance disorder [Recovering/Resolving]

NARRATIVE: CASE EVENT DATE: 2014
